FAERS Safety Report 7609048-7 (Version None)
Quarter: 2011Q3

REPORT INFORMATION
  Report Type: 
  Country: None (occurrence: None)
  Receive Date: 20110706
  Receipt Date: 20110622
  Transmission Date: 20111222
  Serious: Yes (Other)
  Sender: FDA-Public Use
  Company Number: IPC201106-001920

PATIENT
  Sex: Female

DRUGS (2)
  1. REGLAN [Suspect]
     Dosage: ORAL
     Route: 048
     Dates: start: 19830101, end: 20110127
  2. METOCLOPRAMIDE HYDROCHLORIDE [Suspect]
     Dosage: ORAL
     Route: 048
     Dates: start: 19830101, end: 20110127

REACTIONS (6)
  - RESTLESS LEGS SYNDROME [None]
  - TREMOR [None]
  - MOVEMENT DISORDER [None]
  - PARKINSON'S DISEASE [None]
  - TARDIVE DYSKINESIA [None]
  - EXTRAPYRAMIDAL DISORDER [None]
